FAERS Safety Report 7125531-5 (Version None)
Quarter: 2010Q4

REPORT INFORMATION
  Report Type: 
  Country: None (occurrence: None)
  Receive Date: 20101129
  Receipt Date: 20101118
  Transmission Date: 20110411
  Serious: Yes (Other)
  Sender: FDA-Public Use
  Company Number: A0894299A

PATIENT
  Sex: Male

DRUGS (1)
  1. NICORETTE [Suspect]
     Indication: SMOKING CESSATION THERAPY
     Dosage: 3GUM PER DAY
     Route: 002
     Dates: start: 20000101

REACTIONS (6)
  - AGGRESSION [None]
  - INTENTIONAL DRUG MISUSE [None]
  - NERVOUSNESS [None]
  - NICOTINE DEPENDENCE [None]
  - TREMOR [None]
  - WITHDRAWAL SYNDROME [None]
